FAERS Safety Report 12190177 (Version 1)
Quarter: 2016Q1

REPORT INFORMATION
  Report Type: Spontaneous
  Country: CA (occurrence: CA)
  Receive Date: 20160318
  Receipt Date: 20160318
  Transmission Date: 20160526
  Serious: Yes (Other)
  Sender: FDA-Public Use
  Company Number: CA-SA-2016SA052010

PATIENT
  Sex: Female

DRUGS (3)
  1. PREDNISONE. [Concomitant]
     Active Substance: PREDNISONE
  2. NAPROSYN [Concomitant]
     Active Substance: NAPROXEN
  3. ARAVA [Suspect]
     Active Substance: LEFLUNOMIDE
     Indication: PAIN
     Route: 048

REACTIONS (5)
  - Stress [Unknown]
  - Hip arthroplasty [Unknown]
  - Knee arthroplasty [Unknown]
  - Gait disturbance [Unknown]
  - Arthropathy [Unknown]

NARRATIVE: CASE EVENT DATE: 201407
